FAERS Safety Report 9831274 (Version 2)
Quarter: 2014Q1

REPORT INFORMATION
  Report Type: Report from Study
  Country: GB (occurrence: GB)
  Receive Date: 20140121
  Receipt Date: 20140129
  Transmission Date: 20141002
  Serious: Yes (Life-Threatening, Hospitalization)
  Sender: FDA-Public Use
  Company Number: GB-ROCHE-1336111

PATIENT
  Age: 88 Year
  Sex: Male

DRUGS (12)
  1. RANIBIZUMAB [Suspect]
     Indication: AGE-RELATED MACULAR DEGENERATION
     Route: 050
     Dates: start: 20080926
  2. RANIBIZUMAB [Suspect]
     Route: 050
     Dates: start: 20120924
  3. BETAHISTINE [Concomitant]
     Route: 065
     Dates: start: 19841011
  4. BETAHISTINE [Concomitant]
     Route: 065
     Dates: start: 20130117
  5. GLYCERYL TRINITRATE [Concomitant]
     Route: 065
     Dates: start: 20130209
  6. GLYCERYL TRINITRATE [Concomitant]
     Route: 065
     Dates: start: 20130428
  7. ASPIRIN [Concomitant]
     Route: 065
     Dates: start: 20130209
  8. ASPIRIN [Concomitant]
     Route: 065
     Dates: start: 20130428
  9. RAMIPRIL [Concomitant]
     Route: 065
     Dates: start: 20130209
  10. BISOPROLOL [Concomitant]
     Route: 065
     Dates: start: 20130209
  11. BISOPROLOL [Concomitant]
     Route: 065
     Dates: start: 20130428
  12. ISOSORBIDE MONONITRATE [Concomitant]
     Route: 065
     Dates: start: 20130209

REACTIONS (3)
  - Myocardial infarction [Recovered/Resolved]
  - Urinary tract infection [Recovered/Resolved]
  - Fall [Unknown]
